FAERS Safety Report 8606762-1 (Version None)
Quarter: 2012Q3

REPORT INFORMATION
  Report Type: 
  Country: None (occurrence: None)
  Receive Date: 20120820
  Receipt Date: 20120806
  Transmission Date: 20120928
  Serious: Yes (Hospitalization, Other)
  Sender: FDA-Public Use
  Company Number: US-JHP PHARMACEUTICALS, LLC-JHP201200401

PATIENT
  Age: 18 Year
  Sex: Female

DRUGS (1)
  1. KETALAR [Suspect]
     Indication: DRUG ABUSE
     Dosage: 3 TIMES/WEEK
     Route: 055

REACTIONS (4)
  - BILIARY DILATATION [None]
  - DYSURIA [None]
  - POLLAKIURIA [None]
  - MICTURITION URGENCY [None]
